FAERS Safety Report 7060117-2 (Version None)
Quarter: 2010Q4

REPORT INFORMATION
  Report Type: 
  Country: None (occurrence: None)
  Receive Date: 20101025
  Receipt Date: 20101011
  Transmission Date: 20110411
  Serious: Yes (Other)
  Sender: FDA-Public Use
  Company Number: PHHY2010US67855

PATIENT
  Age: 53 Year
  Sex: Female

DRUGS (4)
  1. OCTREOTIDE ACETATE [Suspect]
     Indication: METASTASES TO LIVER
     Dosage: UNK
     Route: 030
     Dates: start: 20010101
  2. OCTREOTIDE ACETATE [Suspect]
     Dosage: 60 MG, UNK
     Route: 030
  3. SILDENAFIL CITRATE [Concomitant]
     Dosage: 20 MG, TID
  4. SIROLIMUS [Concomitant]
     Dosage: 01 MG, BID

REACTIONS (20)
  - BILE DUCT OBSTRUCTION [None]
  - BLOOD BILIRUBIN INCREASED [None]
  - CATHETERISATION CARDIAC [None]
  - DIASTOLIC DYSFUNCTION [None]
  - DILATATION VENTRICULAR [None]
  - DYSPNOEA EXERTIONAL [None]
  - ELECTROCARDIOGRAM ST-T CHANGE [None]
  - EPISTAXIS [None]
  - GASTRIC VARICES [None]
  - LEFT VENTRICULAR DYSFUNCTION [None]
  - LEFT VENTRICULAR HYPERTROPHY [None]
  - LIVER FUNCTION TEST ABNORMAL [None]
  - MALIGNANT NEOPLASM PROGRESSION [None]
  - PORTAL HYPERTENSION [None]
  - PULMONARY ARTERIAL HYPERTENSION [None]
  - PULMONARY VASCULAR RESISTANCE ABNORMALITY [None]
  - TRICUSPID VALVE DISEASE [None]
  - TRICUSPID VALVE INCOMPETENCE [None]
  - VARICES OESOPHAGEAL [None]
  - VENOUS OXYGEN SATURATION ABNORMAL [None]
